FAERS Safety Report 21877201 (Version 1)
Quarter: 2023Q1

REPORT INFORMATION
  Report Type: Report from Study
  Country: US (occurrence: US)
  Receive Date: 20230118
  Receipt Date: 20230118
  Transmission Date: 20230417
  Serious: No
  Sender: FDA-Public Use
  Company Number: US-ABBVIE-4273089

PATIENT
  Sex: Female

DRUGS (1)
  1. HUMIRA [Suspect]
     Active Substance: ADALIMUMAB
     Indication: Product used for unknown indication
     Dosage: FORM STRENGTH: 40 MG
     Route: 058

REACTIONS (7)
  - Wrong technique in product usage process [Not Recovered/Not Resolved]
  - Condition aggravated [Unknown]
  - Cartilage injury [Unknown]
  - Pain [Unknown]
  - General physical condition abnormal [Unknown]
  - Malaise [Unknown]
  - Osteoarthritis [Unknown]
